FAERS Safety Report 8762884 (Version 2)
Quarter: 2012Q4

REPORT INFORMATION
  Report Type: Spontaneous
  Country: US (occurrence: None)
  Receive Date: 20120823
  Receipt Date: 20120830
  Transmission Date: 20130627
  Serious: Yes (Hospitalization)
  Sender: FDA-Public Use
  Company Number: 2012AP002405

PATIENT
  Age: 65 Year
  Sex: Male

DRUGS (4)
  1. LEVOFLOXACIN [Suspect]
     Indication: DRUG USE FOR UNKNOWN INDICATION
  2. FLUCONAZOLE [Suspect]
     Indication: DRUG USE FOR UNKNOWN INDICATION
  3. VANCOMYCIN [Suspect]
     Indication: DRUG USE FOR UNKNOWN INDICATION
  4. METRONIDAZOLE [Suspect]
     Indication: DRUG USE FOR UNKNOWN INDICATION

REACTIONS (10)
  - Drug reaction with eosinophilia and systemic symptoms [None]
  - Metabolic acidosis [None]
  - General physical health deterioration [None]
  - Multi-organ failure [None]
  - Mental status changes [None]
  - Tachycardia [None]
  - Respiratory distress [None]
  - Stridor [None]
  - Haemodynamic instability [None]
  - Arrhythmia supraventricular [None]
